FAERS Safety Report 24768802 (Version 1)
Quarter: 2024Q4

REPORT INFORMATION
  Report Type: Spontaneous
  Country: GB (occurrence: GB)
  Receive Date: 20241224
  Receipt Date: 20241224
  Transmission Date: 20250114
  Serious: Yes (Disabling)
  Sender: TEVA
  Company Number: GB-MHRA-TPP36046830C5442126YC1734083226714

PATIENT
  Age: 82 Year
  Sex: Male
  Weight: 79 kg

DRUGS (14)
  1. LORATADINE [Suspect]
     Active Substance: LORATADINE
     Indication: Ill-defined disorder
     Route: 065
     Dates: start: 20241205
  2. BALNEUM [Concomitant]
     Indication: Ill-defined disorder
     Dosage: APPLY AS REQUIRED
     Route: 065
     Dates: start: 20241205
  3. FEXOFENADINE [Concomitant]
     Active Substance: FEXOFENADINE HYDROCHLORIDE
     Indication: Ill-defined disorder
     Dosage: TAKE ONE DAILY, DAILY DOSE: 1 DOSAGE FORM DAILY
     Route: 065
     Dates: start: 20240927, end: 20241027
  4. INDAPAMIDE [Concomitant]
     Active Substance: INDAPAMIDE
     Indication: Ill-defined disorder
     Dosage: TAKE ONE EACH MORNING, DAILY DOSE: 1 DOSAGE FORM DAILY
     Route: 065
     Dates: start: 20240704, end: 20241101
  5. CETIRIZINE [Concomitant]
     Active Substance: CETIRIZINE HYDROCHLORIDE
     Indication: Ill-defined disorder
     Dosage: TAKE ONE DAILY, DAILY DOSE: 1 DOSAGE FORM DAILY
     Route: 065
     Dates: start: 20240704
  6. ASPIRIN [Concomitant]
     Active Substance: ASPIRIN
     Indication: Ill-defined disorder
     Dosage: ONE TO BE TAKEN DAILY, DAILY DOSE: 1 DOSAGE FORM  DAILY
     Route: 065
     Dates: start: 20240704
  7. ZEROBASE [Concomitant]
     Indication: Ill-defined disorder
     Dosage: APPLY AS OFTEN AS POSSIBLE. KEEP IN FRIDGE
     Route: 065
     Dates: start: 20241007, end: 20241104
  8. BECLOMETHASONE DIPROPIONATE [Concomitant]
     Active Substance: BECLOMETHASONE DIPROPIONATE
     Indication: Ill-defined disorder
     Dosage: TWO PUFFS TWICE DAILY, DAILY DOSE: 4 DOSAGE FORM DAILY
     Route: 065
     Dates: start: 20240704
  9. CLOBETASONE BUTYRATE [Concomitant]
     Active Substance: CLOBETASONE BUTYRATE
     Indication: Ill-defined disorder
     Dosage: APPLY TO ITCHY AREAS TWICE DAILY
     Route: 065
     Dates: start: 20241101, end: 20241129
  10. LISINOPRIL [Concomitant]
     Active Substance: LISINOPRIL
     Indication: Ill-defined disorder
     Dosage: ONE TO BE TAKEN DAILY, DAILY DOSE: 1 DOSAGE FORM DAILY
     Route: 065
     Dates: start: 20241101
  11. ATORVASTATIN [Concomitant]
     Active Substance: ATORVASTATIN
     Indication: Ill-defined disorder
     Dosage: ONE TO BE TAKEN DAILY, DAILY DOSE: 1 DOSAGE FORM DAILY
     Route: 065
     Dates: start: 20240704
  12. HYDROXYZINE [Concomitant]
     Active Substance: HYDROXYZINE HYDROCHLORIDE
     Indication: Ill-defined disorder
     Dosage: ONE TO BE TAKEN AT NIGHT, DAILY DOSE: 1 DOSAGE FORM DAILY
     Route: 065
     Dates: start: 20240927
  13. LEVOTHYROXINE [Concomitant]
     Active Substance: LEVOTHYROXINE
     Indication: Ill-defined disorder
     Dosage: ONE TO BE TAKEN IN THE MORNING, DAILY DOSE: 1 DOSAGE FORM DAILY
     Route: 065
     Dates: start: 20240704
  14. LORATADINE [Concomitant]
     Active Substance: LORATADINE
     Indication: Ill-defined disorder
     Dosage: TIME INTERVAL: 0.33333333 DAYS: 1 TO BE TAKEN THREE TIMES DAILY, DAILY DOSE: 3 DOSAGE FORM DAILY
     Route: 065
     Dates: start: 20241101, end: 20241120

REACTIONS (1)
  - Dizziness [Recovered/Resolved]

NARRATIVE: CASE EVENT DATE: 20241205
